FAERS Safety Report 5280244-X (Version None)
Quarter: 2007Q2

REPORT INFORMATION
  Report Type: 
  Country: None (occurrence: None)
  Receive Date: 20070329
  Receipt Date: 20070209
  Transmission Date: 20071010
  Serious: No
  Sender: FDA-Public Use
  Company Number: US-BRISTOL-MYERS SQUIBB COMPANY-13675061

PATIENT

DRUGS (4)
  1. ABILIFY [Suspect]
     Route: 030
  2. ABILIFY [Concomitant]
     Route: 048
  3. ZYPREXA [Concomitant]
  4. COGENTIN [Concomitant]

REACTIONS (1)
  - EXTRAPYRAMIDAL DISORDER [None]
